FAERS Safety Report 7197620-0 (Version None)
Quarter: 2010Q4

REPORT INFORMATION
  Report Type: 
  Country: None (occurrence: None)
  Receive Date: 20101207
  Receipt Date: 20101127
  Transmission Date: 20110411
  Serious: Yes (Other)
  Sender: FDA-Public Use
  Company Number: 2010SP062492

PATIENT
  Sex: Male

DRUGS (2)
  1. RIBAVARIN [Suspect]
     Indication: HEPATITIS
  2. INTERFERON [Suspect]
     Indication: HEPATITIS

REACTIONS (2)
  - NEPHROTIC SYNDROME [None]
  - NEUTROPENIA [None]
